FAERS Safety Report 8256318-8 (Version None)
Quarter: 2012Q2

REPORT INFORMATION
  Report Type: 
  Country: None (occurrence: None)
  Receive Date: 20120403
  Receipt Date: 20120320
  Transmission Date: 20120825
  Serious: Yes (Other)
  Sender: FDA-Public Use
  Company Number: FR-AMGEN-FRASP2012019732

PATIENT
  Age: 48 Year
  Sex: Female

DRUGS (2)
  1. ENBREL [Suspect]
     Indication: RHEUMATOID ARTHRITIS
     Dosage: 50 MG, WEEKLY
     Dates: start: 20100623
  2. DICLOFENAC SODIUM [Concomitant]
     Dosage: UNK

REACTIONS (3)
  - SPHINCTER OF ODDI DYSFUNCTION [None]
  - BILIARY COLIC [None]
  - TRANSAMINASES INCREASED [None]
